FAERS Safety Report 16824215 (Version 1)
Quarter: 2019Q3

REPORT INFORMATION
  Report Type: Spontaneous
  Country: US (occurrence: US)
  Receive Date: 20190918
  Receipt Date: 20190918
  Transmission Date: 20191005
  Serious: No
  Sender: FDA-Public Use
  Company Number: US-GLAXOSMITHKLINE-US2019140338

PATIENT
  Sex: Female

DRUGS (3)
  1. TUMS CHEWY BITES WITH GAS RELIEF [Suspect]
     Active Substance: CALCIUM CARBONATE\DIMETHICONE
     Indication: GASTRIC ULCER
  2. TUMS CHEWY BITES WITH GAS RELIEF [Suspect]
     Active Substance: CALCIUM CARBONATE\DIMETHICONE
     Indication: GASTRITIS
     Dosage: UNK
  3. ZANTAC [Suspect]
     Active Substance: RANITIDINE HYDROCHLORIDE
     Indication: PRODUCT USED FOR UNKNOWN INDICATION
     Dosage: UNK

REACTIONS (2)
  - Off label use [Unknown]
  - Product use in unapproved indication [Unknown]
